FAERS Safety Report 8762053 (Version 4)
Quarter: 2018Q3

REPORT INFORMATION
  Report Type: Spontaneous
  Country: FR (occurrence: FR)
  Receive Date: 20120830
  Receipt Date: 20180917
  Transmission Date: 20181010
  Serious: Yes (Hospitalization, Other)
  Sender: FDA-Public Use
  Company Number: FR-PFIZER INC-2012211280

PATIENT
  Age: 25 Year
  Sex: Male

DRUGS (6)
  1. DEPAKINE CHRONO [Interacting]
     Active Substance: VALPROATE SODIUM
     Dosage: 500 MG, QD
     Route: 048
     Dates: start: 201107, end: 20120331
  2. DEPAKINE CHRONO [Interacting]
     Active Substance: VALPROATE SODIUM
     Dosage: 500 MG, DAILY
     Route: 048
  3. ZYRTEC [Concomitant]
     Active Substance: CETIRIZINE HYDROCHLORIDE
     Indication: HYPERSENSITIVITY
     Dosage: UNK
     Route: 048
  4. TEGRETOL [Concomitant]
     Active Substance: CARBAMAZEPINE
     Dosage: 600 MG, QD
     Route: 048
     Dates: start: 201111, end: 20120216
  5. INIPOMP [Suspect]
     Active Substance: PANTOPRAZOLE SODIUM
     Dosage: 20 MG, QD
     Route: 048
     Dates: start: 201201, end: 20120320
  6. TEMODAL [Interacting]
     Active Substance: TEMOZOLOMIDE
     Dosage: 280 MG, QD
     Route: 048
     Dates: start: 20120120, end: 20120124

REACTIONS (5)
  - Agranulocytosis [Recovered/Resolved]
  - Drug interaction [Unknown]
  - Anaemia [Recovering/Resolving]
  - Thrombocytopenia [Recovered/Resolved]
  - Pancytopenia [Recovered/Resolved]

NARRATIVE: CASE EVENT DATE: 20120308
